FAERS Safety Report 6992848-4 (Version None)
Quarter: 2010Q3

REPORT INFORMATION
  Report Type: 
  Country: None (occurrence: None)
  Receive Date: 20100917
  Receipt Date: 20100909
  Transmission Date: 20110219
  Serious: Yes (Life-Threatening)
  Sender: FDA-Public Use
  Company Number: B0451808A

PATIENT
  Sex: Male
  Weight: 62 kg

DRUGS (2)
  1. GW786034 [Suspect]
     Indication: SARCOMA
     Dosage: 800MG PER DAY
     Route: 048
     Dates: start: 20060703, end: 20061221
  2. EPREX [Suspect]
     Dosage: 40000UNIT WEEKLY
     Route: 058
     Dates: start: 20061010, end: 20061222

REACTIONS (2)
  - PULMONARY EMBOLISM [None]
  - VENA CAVA THROMBOSIS [None]
